FAERS Safety Report 8553603-7 (Version None)
Quarter: 2012Q3

REPORT INFORMATION
  Report Type: 
  Country: None (occurrence: None)
  Receive Date: 20120725
  Receipt Date: 20120725
  Transmission Date: 20120928
  Serious: Yes (Other)
  Sender: FDA-Public Use
  Company Number: None

PATIENT
  Age: 79 Year
  Sex: Female

DRUGS (1)
  1. PRADAXA [Suspect]
     Dosage: TAKE 1 CAPSULE TWICE A DAY
     Dates: start: 20120320

REACTIONS (1)
  - HAEMATOCHEZIA [None]
